FAERS Safety Report 20551371 (Version 2)
Quarter: 2022Q1

REPORT INFORMATION
  Report Type: Spontaneous
  Country: FI (occurrence: FI)
  Receive Date: 20220304
  Receipt Date: 20220325
  Transmission Date: 20220423
  Serious: Yes (Other)
  Sender: FDA-Public Use
  Company Number: None

PATIENT
  Age: 71 Year
  Sex: Female

DRUGS (8)
  1. PREDNISOLONE [Suspect]
     Active Substance: PREDNISOLONE
     Route: 065
     Dates: start: 2021, end: 20210928
  2. COMIRNATY [Suspect]
     Active Substance: TOZINAMERAN
     Dosage: DOSE 2,,
     Route: 065
     Dates: start: 20210324, end: 20210616
  3. DIFLUCAN [Concomitant]
     Active Substance: FLUCONAZOLE
     Indication: Fungal infection
     Dates: start: 2022
  4. BISOPROLOL [Concomitant]
     Active Substance: BISOPROLOL
     Indication: Palpitations
     Dosage: 2.5 MILLIGRAM DAILY; 2.5,MG,DAILY
     Route: 048
     Dates: start: 2012, end: 2021
  5. ASPIRIN [Concomitant]
     Active Substance: ASPIRIN
     Indication: Aneurysm
     Dosage: 100 MILLIGRAM DAILY; 100,MG,DAILY
     Route: 048
     Dates: start: 2016
  6. INNOVAIR [Concomitant]
     Active Substance: BECLOMETHASONE DIPROPIONATE\FORMOTEROL
     Indication: Asthma
     Dosage: ,,AS NECESSARY
     Dates: start: 2018
  7. HYDROXYCHLOROQUINE SULFATE [Concomitant]
     Active Substance: HYDROXYCHLOROQUINE SULFATE
     Indication: Systemic lupus erythematosus
     Dosage: 300 MILLIGRAM DAILY; 300,MG,DAILY
     Route: 048
     Dates: start: 2007
  8. DESLORATADINE [Concomitant]
     Active Substance: DESLORATADINE
     Indication: Hypersensitivity
     Dosage: 5 MILLIGRAM DAILY; 5,MG,DAILY,DESLORATADINE ACTAVIS
     Dates: start: 2019

REACTIONS (3)
  - Parapsoriasis [Not Recovered/Not Resolved]
  - Oesophageal candidiasis [Not Recovered/Not Resolved]
  - Purpura [Not Recovered/Not Resolved]

NARRATIVE: CASE EVENT DATE: 20210413
